FAERS Safety Report 16801076 (Version 1)
Quarter: 2019Q3

REPORT INFORMATION
  Report Type: Report from Study
  Country: DE (occurrence: DE)
  Receive Date: 20190912
  Receipt Date: 20190912
  Transmission Date: 20191005
  Serious: Yes (Hospitalization, Other)
  Sender: FDA-Public Use
  Company Number: PHHY2019DE211076

PATIENT
  Sex: Male

DRUGS (1)
  1. COSENTYX [Suspect]
     Active Substance: SECUKINUMAB
     Indication: PSORIASIS
     Dosage: 300 MG, UNK
     Route: 058
     Dates: start: 20190401

REACTIONS (10)
  - Congestive cardiomyopathy [Recovered/Resolved with Sequelae]
  - Cardiovascular disorder [Unknown]
  - Atrial fibrillation [Recovered/Resolved with Sequelae]
  - Type 2 diabetes mellitus [Unknown]
  - Pain [Unknown]
  - Hypertension [Unknown]
  - Atrial fibrillation [Recovered/Resolved with Sequelae]
  - Chronic left ventricular failure [Unknown]
  - Sleep apnoea syndrome [Unknown]
  - Emphysema [Unknown]

NARRATIVE: CASE EVENT DATE: 20190516
